FAERS Safety Report 17546997 (Version 1)
Quarter: 2020Q1

REPORT INFORMATION
  Report Type: Spontaneous
  Country: US (occurrence: US)
  Receive Date: 20200316
  Receipt Date: 20200316
  Transmission Date: 20200409
  Serious: No
  Sender: FDA-Public Use
  Company Number: US-PFIZER INC-2019130963

PATIENT
  Age: 59 Year
  Sex: Male
  Weight: 133.3 kg

DRUGS (11)
  1. LYRICA [Suspect]
     Active Substance: PREGABALIN
     Dosage: 200 MG, DAILY(2 IN THE MORNING AND 2 AT NIGHT)
     Route: 048
  2. PERCOCET [OXYCODONE HYDROCHLORIDE;OXYCODONE TEREPHTHALATE;PARACETAMOL] [Concomitant]
     Active Substance: ACETAMINOPHEN\OXYCODONE HYDROCHLORIDE\OXYCODONE TEREPHTHALATE
     Indication: PAIN MANAGEMENT
     Dosage: UNK(10MG/325MG TABLET BY MOUTH ONCE A DAY AS NEEDED)
     Route: 048
  3. LYRICA [Suspect]
     Active Substance: PREGABALIN
     Indication: NEURALGIA
     Dosage: 50 MG, 3X/DAY
  4. FENTANYL. [Concomitant]
     Active Substance: FENTANYL
     Indication: PAIN MANAGEMENT
     Dosage: 37 MG, UNK(CHANGED OUT EVERY 72 HOURS)
  5. FENTANYL. [Concomitant]
     Active Substance: FENTANYL
     Dosage: 37 UG, UNK(EVERY 3 DAYS ALTERNATING BETWEEN THE LEFT BREAST AND LEFT SHOULDER)
  6. FENTANYL. [Concomitant]
     Active Substance: FENTANYL
     Dosage: 50 UG, UNK
  7. LYRICA [Suspect]
     Active Substance: PREGABALIN
     Indication: PAIN
     Dosage: 50 MG, 2X/DAY, [1 CAPSULE IN THE MORNING AND 1 IN THE EVENING]
  8. OXYCODONE [Concomitant]
     Active Substance: OXYCODONE
     Indication: PAIN
     Dosage: UNK
  9. FENTANYL. [Concomitant]
     Active Substance: FENTANYL
     Dosage: 37 UG, UNK(ONE 12MCG FENTANYL PATCH AND ONE 25MCG FENTANYL PATCH)
  10. LYRICA [Suspect]
     Active Substance: PREGABALIN
     Dosage: 150 MG, DAILY [2 CAPSULES AT NIGHT AND ONE IN THE MORNING]
  11. FENTANYL. [Concomitant]
     Active Substance: FENTANYL
     Indication: PAIN
     Dosage: 50 MG, UNK (EVERY 72 HOURS)
     Dates: start: 2016

REACTIONS (3)
  - Intentional product misuse [Unknown]
  - Body height decreased [Unknown]
  - Weight increased [Unknown]
